FAERS Safety Report 5113778-9 (Version None)
Quarter: 2006Q3

REPORT INFORMATION
  Report Type: 
  Country: None (occurrence: None)
  Receive Date: 20060921
  Receipt Date: 20060921
  Transmission Date: 20061208
  Serious: No
  Sender: FDA-Public Use
  Company Number: None

PATIENT
  Age: 61 Year
  Sex: Female
  Weight: 63.5036 kg

DRUGS (1)
  1. ZONEGRAN [Suspect]
     Indication: MIGRAINE PROPHYLAXIS
     Dosage: 100MG + 200MG EVERY OTHER DAY   PO
     Route: 048
     Dates: start: 20060602, end: 20060916

REACTIONS (2)
  - DRUG INEFFECTIVE [None]
  - PHARMACEUTICAL PRODUCT COUNTERFEIT [None]
